FAERS Safety Report 6289019-6 (Version None)
Quarter: 2009Q3

REPORT INFORMATION
  Report Type: 
  Country: None (occurrence: None)
  Receive Date: 20090729
  Receipt Date: 20090721
  Transmission Date: 20100115
  Serious: Yes (Other)
  Sender: FDA-Public Use
  Company Number: US-ASTRAZENECA-2009UW19642

PATIENT
  Age: 82 Year
  Sex: Male

DRUGS (2)
  1. ARIMIDEX [Suspect]
     Indication: BREAST CANCER
     Route: 048
     Dates: start: 20090401
  2. COUMADIN [Concomitant]
     Dates: end: 20090601

REACTIONS (6)
  - ARTHRALGIA [None]
  - BACK PAIN [None]
  - DIZZINESS [None]
  - INCISION SITE HAEMORRHAGE [None]
  - OEDEMA PERIPHERAL [None]
  - THROMBOSIS [None]
